FAERS Safety Report 14841910 (Version 2)
Quarter: 2018Q3

REPORT INFORMATION
  Report Type: Spontaneous
  Country: US (occurrence: US)
  Receive Date: 20180503
  Receipt Date: 20180910
  Transmission Date: 20181010
  Serious: Yes (Hospitalization, Other)
  Sender: FDA-Public Use
  Company Number: US-PFIZER INC-2018183109

PATIENT
  Age: 49 Year
  Sex: Male
  Weight: 179.14 kg

DRUGS (2)
  1. SUTENT [Suspect]
     Active Substance: SUNITINIB MALATE
     Indication: RENAL CELL CARCINOMA
     Dosage: 50 MG, CYCLIC (DAYS 1?28 Q 42 DAYS)
     Route: 048
     Dates: start: 20180217
  2. SUTENT [Suspect]
     Active Substance: SUNITINIB MALATE
     Dosage: 50 MG, CYCLIC (DAYS 1?28 Q 42 DAYS)
     Route: 048
     Dates: start: 20180217

REACTIONS (7)
  - Headache [Unknown]
  - Hand fracture [Unknown]
  - Nausea [Unknown]
  - Chronic obstructive pulmonary disease [Unknown]
  - Renal failure [Recovering/Resolving]
  - Tremor [Unknown]
  - Fall [Unknown]
